FAERS Safety Report 25007036 (Version 2)
Quarter: 2025Q1

REPORT INFORMATION
  Report Type: Spontaneous
  Country: FR (occurrence: None)
  Receive Date: 20250225
  Receipt Date: 20250304
  Transmission Date: 20250409
  Serious: Yes (Hospitalization)
  Sender: ORION
  Company Number: None

PATIENT
  Age: 55 Year
  Sex: Female
  Weight: 70 kg

DRUGS (3)
  1. METHOTREXATE SODIUM [Interacting]
     Active Substance: METHOTREXATE SODIUM
     Indication: Sarcoidosis
     Dates: start: 2023, end: 20230731
  2. PREDNISONE [Interacting]
     Active Substance: PREDNISONE
     Indication: Sarcoidosis
     Dates: start: 20230210, end: 20231201
  3. HUMIRA [Interacting]
     Active Substance: ADALIMUMAB
     Indication: Sarcoidosis
     Dates: start: 20230801, end: 20231201

REACTIONS (5)
  - Drug interaction [Recovered/Resolved]
  - Bone tuberculosis [Recovering/Resolving]
  - Condition aggravated [Recovering/Resolving]
  - Immunosuppression [Unknown]
  - Product use in unapproved indication [Unknown]

NARRATIVE: CASE EVENT DATE: 20230101
